FAERS Safety Report 8540049-0 (Version None)
Quarter: 2012Q3

REPORT INFORMATION
  Report Type: 
  Country: None (occurrence: None)
  Receive Date: 20120726
  Receipt Date: 20120717
  Transmission Date: 20120928
  Serious: Yes (Hospitalization)
  Sender: FDA-Public Use
  Company Number: DE-ASTRAZENECA-2012SE49626

PATIENT
  Age: 31436 Day
  Sex: Male

DRUGS (16)
  1. BRILINTA [Suspect]
     Route: 048
     Dates: start: 20120120, end: 20120709
  2. BRILINTA [Suspect]
     Route: 048
     Dates: start: 20120717
  3. ASPIRIN [Suspect]
     Route: 048
  4. BRILINTA [Suspect]
     Indication: ARTERIAL STENT INSERTION
     Route: 048
     Dates: start: 20110526, end: 20110529
  5. PANTOPRAZOLE [Concomitant]
     Indication: GASTRIC DISORDER
     Route: 048
     Dates: start: 20110926
  6. BRILINTA [Suspect]
     Route: 048
     Dates: start: 20110801, end: 20120102
  7. RAMIPRIL [Concomitant]
     Indication: HYPERTENSION
     Route: 048
  8. PLACEBO [Suspect]
     Indication: CORONARY ARTERY DISEASE
     Route: 048
     Dates: start: 20120717
  9. AMLODIPINE [Concomitant]
     Indication: HYPERTENSION
     Route: 048
     Dates: start: 20110526
  10. BRILINTA [Suspect]
     Indication: CORONARY ARTERY DISEASE
     Route: 048
     Dates: start: 20110526, end: 20110529
  11. BRILINTA [Suspect]
     Route: 048
     Dates: start: 20120717
  12. PLACEBO [Suspect]
     Indication: ARTERIAL STENT INSERTION
     Route: 048
     Dates: start: 20120717
  13. BRILINTA [Suspect]
     Route: 048
     Dates: start: 20110801, end: 20120102
  14. BRILINTA [Suspect]
     Route: 048
     Dates: start: 20120120, end: 20120709
  15. SIMVASTATIN [Concomitant]
     Indication: CORONARY ARTERY DISEASE
     Route: 048
  16. PENTAERYTHRITOL TETRANITRATE [Concomitant]
     Indication: ANGINA PECTORIS
     Route: 048
     Dates: end: 20120712

REACTIONS (2)
  - GASTRIC ULCER HAEMORRHAGE [None]
  - MALLORY-WEISS SYNDROME [None]
